FAERS Safety Report 7638721-X (Version None)
Quarter: 2011Q3

REPORT INFORMATION
  Report Type: 
  Country: None (occurrence: None)
  Receive Date: 20110727
  Receipt Date: 20110721
  Transmission Date: 20111222
  Serious: Yes (Other)
  Sender: FDA-Public Use
  Company Number: US-JNJFOC-20060705065

PATIENT
  Age: 28 Year
  Sex: Male

DRUGS (1)
  1. DEXTROMETHORPHAN HYDROBROMIDE [Suspect]
     Indication: PRODUCT USED FOR UNKNOWN INDICATION
     Route: 048
     Dates: start: 20060101

REACTIONS (5)
  - ATAXIA [None]
  - INTENTIONAL DRUG MISUSE [None]
  - DRUG ABUSE [None]
  - STUPOR [None]
  - NYSTAGMUS [None]
